FAERS Safety Report 8283147-1 (Version None)
Quarter: 2012Q2

REPORT INFORMATION
  Report Type: 
  Country: None (occurrence: None)
  Receive Date: 20120413
  Receipt Date: 20120406
  Transmission Date: 20120825
  Serious: Yes (Hospitalization)
  Sender: FDA-Public Use
  Company Number: RO-GLAXOSMITHKLINE-B0788877A

PATIENT
  Sex: Female

DRUGS (1)
  1. PROMACTA [Suspect]
     Indication: IDIOPATHIC THROMBOCYTOPENIC PURPURA
     Dosage: 50MG PER DAY
     Route: 065
     Dates: start: 20120211, end: 20120309

REACTIONS (6)
  - AGITATION [None]
  - DECREASED APPETITE [None]
  - PLATELET COUNT INCREASED [None]
  - PSOAS ABSCESS [None]
  - MENINGITIS [None]
  - NERVOUSNESS [None]
